FAERS Safety Report 13735117 (Version 1)
Quarter: 2017Q3

REPORT INFORMATION
  Report Type: Report from Study
  Country: CN (occurrence: CN)
  Receive Date: 20170710
  Receipt Date: 20170710
  Transmission Date: 20171127
  Serious: Yes (Hospitalization)
  Sender: FDA-Public Use
  Company Number: CN-ROCHE-1958566

PATIENT

DRUGS (1)
  1. ALTEPLASE. [Suspect]
     Active Substance: ALTEPLASE
     Indication: ISCHAEMIC STROKE
     Dosage: MAXIMUM DOSE WAS 90 MG, OF WHICH 10% WAS DELIVERED VIA INTRAVENOUS PUSH WITHIN 1 MIN, AND THE REMAIN
     Route: 042

REACTIONS (1)
  - Haemorrhage intracranial [Unknown]
